FAERS Safety Report 11992823 (Version 1)
Quarter: 2016Q1

REPORT INFORMATION
  Report Type: Report from Study
  Country: US (occurrence: US)
  Receive Date: 20160203
  Receipt Date: 20160203
  Transmission Date: 20160526
  Serious: No
  Sender: FDA-Public Use
  Company Number: US-UCBSA-2015018882

PATIENT
  Age: 25 Year
  Sex: Male

DRUGS (3)
  1. VIMPAT [Suspect]
     Active Substance: LACOSAMIDE
     Dosage: INCREASED DOSE
     Dates: start: 20151210, end: 2015
  2. VIMPAT [Suspect]
     Active Substance: LACOSAMIDE
     Indication: SEIZURE
     Dosage: 100 MG/ 2  A DAY
     Dates: start: 2015, end: 2015
  3. LEVETIRACETAM. [Suspect]
     Active Substance: LEVETIRACETAM
     Indication: SEIZURE
     Dosage: 750 MG/ 4 A DAY
     Dates: start: 2012

REACTIONS (2)
  - Seizure [Unknown]
  - Tongue biting [Unknown]

NARRATIVE: CASE EVENT DATE: 20141202
